FAERS Safety Report 16993133 (Version 4)
Quarter: 2020Q2

REPORT INFORMATION
  Report Type: Report from Study
  Country: ES (occurrence: ES)
  Receive Date: 20191105
  Receipt Date: 20200522
  Transmission Date: 20200713
  Serious: Yes (Hospitalization)
  Sender: FDA-Public Use
  Company Number: ES-ROCHE-2453143

PATIENT
  Age: 43 Year
  Sex: Female
  Weight: 95 kg

DRUGS (5)
  1. DOXORUBICIN [Suspect]
     Active Substance: DOXORUBICIN
     Indication: HER2 POSITIVE BREAST CANCER
     Dosage: DATE OF MOST RECENT DOSE (116 MG) OF DOXORUBICIN PRIOR TO AE/SAE ONSET: 18/OCT/2019
     Route: 042
     Dates: start: 20191010
  2. FILGRASTIM [Concomitant]
     Active Substance: FILGRASTIM
     Indication: PROPHYLAXIS
     Route: 065
     Dates: start: 20191010, end: 20191015
  3. ATEZOLIZUMAB. [Suspect]
     Active Substance: ATEZOLIZUMAB
     Indication: HER2 POSITIVE BREAST CANCER
     Dosage: DATE OF MOST RECENT DOSE MG OF ATEZOLIZUMAB PRIOR TO AE/SAE ONSET:10/OCT/2019
     Route: 042
     Dates: start: 20191010
  4. CYCLOPHOSPHAMIDE. [Suspect]
     Active Substance: CYCLOPHOSPHAMIDE
     Indication: HER2 POSITIVE BREAST CANCER
     Dosage: DATE OF MOST RECENT DOSE (1160 MG) OF CYCLOPHOSPHAMIDE PRIOR TO AE/SAE ONSET:18/OCT/2019
     Route: 042
     Dates: start: 20191010
  5. ERYTHROCYTES [Concomitant]
     Active Substance: HUMAN RED BLOOD CELL
     Indication: ANAEMIA
     Dosage: 1 (UNIT: OTHER)
     Route: 042
     Dates: start: 20191018

REACTIONS (1)
  - Febrile neutropenia [Recovered/Resolved]

NARRATIVE: CASE EVENT DATE: 20191018
